FAERS Safety Report 16112768 (Version 1)
Quarter: 2019Q1

REPORT INFORMATION
  Report Type: Report from Study
  Country: UG (occurrence: UG)
  Receive Date: 20190325
  Receipt Date: 20190325
  Transmission Date: 20190418
  Serious: Yes (Life-Threatening, Hospitalization, Other)
  Sender: FDA-Public Use
  Company Number: UG-VIIV HEALTHCARE LIMITED-UG2018GSK218858

PATIENT
  Age: 4 Month
  Sex: Male

DRUGS (5)
  1. FERROUS SULFATE. [Concomitant]
     Active Substance: FERROUS SULFATE
     Dosage: 50 MG, UNK
     Dates: start: 20180827, end: 20181203
  2. DOLUTEGRAVIR [Suspect]
     Active Substance: DOLUTEGRAVIR
     Indication: HIV INFECTION
     Dosage: UNK
     Route: 064
     Dates: start: 20180522
  3. COTRIMOXAZOLE [Concomitant]
     Active Substance: SULFAMETHOXAZOLE\TRIMETHOPRIM
     Dosage: 120 MG, UNK
     Dates: start: 20180827
  4. NEVIRAPINE SYRUP [Concomitant]
     Dosage: UNK
     Dates: start: 20180713, end: 201810
  5. FOLIC ACID. [Concomitant]
     Active Substance: FOLIC ACID
     Dosage: 0.55 MG, UNK
     Dates: start: 20180827

REACTIONS (2)
  - Sickle cell anaemia with crisis [Not Recovered/Not Resolved]
  - Bacteraemia [Not Recovered/Not Resolved]

NARRATIVE: CASE EVENT DATE: 20181128
